FAERS Safety Report 5939739-5 (Version None)
Quarter: 2008Q4

REPORT INFORMATION
  Report Type: 
  Country: None (occurrence: None)
  Receive Date: 20081030
  Receipt Date: 20081030
  Transmission Date: 20090506
  Serious: No
  Sender: FDA-Public Use
  Company Number: None

PATIENT
  Sex: Female
  Weight: 83.4619 kg

DRUGS (1)
  1. EFFEXOR XR [Suspect]
     Dosage: 150 MG 1 PER DAY

REACTIONS (5)
  - ABNORMAL DREAMS [None]
  - MALAISE [None]
  - NAUSEA [None]
  - NIGHT SWEATS [None]
  - WITHDRAWAL SYNDROME [None]
